FAERS Safety Report 17136175 (Version 2)
Quarter: 2020Q1

REPORT INFORMATION
  Report Type: Spontaneous
  Country: US (occurrence: US)
  Receive Date: 20191210
  Receipt Date: 20200206
  Transmission Date: 20200409
  Serious: Yes (Other)
  Sender: FDA-Public Use
  Company Number: US-PFIZER INC-2019440031

PATIENT
  Age: 60 Year
  Sex: Female
  Weight: 80.73 kg

DRUGS (12)
  1. LYRICA [Suspect]
     Active Substance: PREGABALIN
     Indication: LUMBOSACRAL RADICULOPATHY
     Dosage: 200 MG, 3X/DAY
     Route: 048
     Dates: start: 2018
  2. POTASSIUM CHLORIDE. [Concomitant]
     Active Substance: POTASSIUM CHLORIDE
     Dosage: 10 MEQ, 1X/DAY
     Dates: start: 2017
  3. VITAMIN D3 [Concomitant]
     Active Substance: CHOLECALCIFEROL
     Dosage: 5000 IU, 1X/DAY
     Dates: start: 201706
  4. LYRICA [Suspect]
     Active Substance: PREGABALIN
     Indication: NERVE INJURY
  5. FUROSEMIDE. [Concomitant]
     Active Substance: FUROSEMIDE
     Dosage: 20 MG, 1X/DAY
  6. NAPROXIN [NAPROXEN] [Concomitant]
     Dosage: 500 MG, 2X/DAY
  7. BACLOFEN. [Concomitant]
     Active Substance: BACLOFEN
     Dosage: 10 MG, 1X/DAY(BACLOFEN: 10 MG- AM; 20 MG AFTERNOON AND 20 MG PM)
  8. BACLOFEN. [Concomitant]
     Active Substance: BACLOFEN
     Dosage: 20 MG, 2X/DAY (20 MG AFTERNOON AND 20 MG PM)
  9. LYRICA [Suspect]
     Active Substance: PREGABALIN
     Indication: MUSCLE SPASMS
  10. LOSARTAN. [Concomitant]
     Active Substance: LOSARTAN
     Dosage: 100 MG, 1X/DAY
  11. METFORMIN [Concomitant]
     Active Substance: METFORMIN HYDROCHLORIDE
     Dosage: 1000 MG, 2X/DAY
     Dates: start: 201806
  12. GABAPENTIN. [Concomitant]
     Active Substance: GABAPENTIN
     Dosage: 300 MG, 3X/DAY

REACTIONS (5)
  - Pain [Not Recovered/Not Resolved]
  - Muscle spasms [Not Recovered/Not Resolved]
  - Insomnia [Not Recovered/Not Resolved]
  - Small fibre neuropathy [Unknown]
  - Mental impairment [Not Recovered/Not Resolved]

NARRATIVE: CASE EVENT DATE: 2019
